FAERS Safety Report 8544158-1 (Version None)
Quarter: 2012Q3

REPORT INFORMATION
  Report Type: 
  Country: None (occurrence: None)
  Receive Date: 20120727
  Receipt Date: 20120718
  Transmission Date: 20120928
  Serious: Yes (Other)
  Sender: FDA-Public Use
  Company Number: FR-PFIZER INC-2012180103

PATIENT
  Age: 75 Year
  Sex: Male

DRUGS (8)
  1. CYMBALTA [Concomitant]
     Dosage: UNK
  2. REPAGLINIDE [Concomitant]
     Dosage: UNK
  3. PLAVIX [Concomitant]
     Dosage: UNK
  4. RAMIPRIL [Suspect]
     Indication: PROTEINURIA
     Dosage: 1.25 MG, DAILY
     Route: 048
     Dates: start: 20120601, end: 20120604
  5. IRBESARTAN [Concomitant]
     Dosage: UNK
  6. XYLOCAINE [Suspect]
     Dosage: UNK
     Route: 058
     Dates: start: 20120604, end: 20120604
  7. CRESTOR [Concomitant]
     Dosage: UNK
  8. LERCANIDIPINE [Concomitant]
     Dosage: UNK

REACTIONS (3)
  - ANGIOEDEMA [None]
  - FALL [None]
  - FACE INJURY [None]
